FAERS Safety Report 26081122 (Version 1)
Quarter: 2025Q4

REPORT INFORMATION
  Report Type: Spontaneous
  Country: EU (occurrence: EU)
  Receive Date: 20251124
  Receipt Date: 20251124
  Transmission Date: 20260117
  Serious: No
  Sender: ASTELLAS
  Company Number: EU-ASTELLAS-2025-AER-063937

PATIENT
  Sex: Female

DRUGS (1)
  1. VEOZAH [Suspect]
     Active Substance: FEZOLINETANT
     Indication: Menopausal symptoms
     Route: 065

REACTIONS (3)
  - Hepatic enzyme increased [Unknown]
  - Somnolence [Unknown]
  - Fatigue [Unknown]
